FAERS Safety Report 4693909-5 (Version None)
Quarter: 2005Q2

REPORT INFORMATION
  Report Type: 
  Country: None (occurrence: None)
  Receive Date: 20050616
  Receipt Date: 20050607
  Transmission Date: 20051028
  Serious: Yes (Death, Hospitalization)
  Sender: FDA-Public Use
  Company Number: HQWYE888819OCT04

PATIENT
  Age: 68 Year
  Sex: Female
  Weight: 83.4 kg

DRUGS (8)
  1. MYLOTARG [Suspect]
     Indication: ACUTE MYELOID LEUKAEMIA
     Dosage: 12 MG 1X PER 1 DAY, INTRAVENOUS
     Route: 042
     Dates: start: 20040205, end: 20040205
  2. MYLOTARG [Suspect]
     Indication: ACUTE MYELOID LEUKAEMIA
     Dosage: 12 MG 1X PER 1 DAY, INTRAVENOUS
     Route: 042
     Dates: start: 20040212, end: 20040212
  3. CYTARABINE [Suspect]
     Indication: CHEMOTHERAPY
     Dosage: 5880 MG EVERY 12 HOURS TIMES 6 DOSES, INTRAVENOUS
     Route: 042
     Dates: start: 20040205, end: 20040208
  4. GUAIFENESIN (GUAIFENESIN) [Concomitant]
  5. MEGACE [Concomitant]
  6. CEFTAZIDIME SODIUM [Concomitant]
  7. PROTONIX [Concomitant]
  8. ACYCLOVIR [Concomitant]

REACTIONS (23)
  - AGITATION [None]
  - BLOOD BILIRUBIN INCREASED [None]
  - BLOOD CULTURE POSITIVE [None]
  - CARDIAC ARREST [None]
  - CELLULITIS [None]
  - CONDITION AGGRAVATED [None]
  - CULTURE URINE POSITIVE [None]
  - DELIRIUM [None]
  - DISORIENTATION [None]
  - ENTEROCOCCAL INFECTION [None]
  - FEBRILE NEUTROPENIA [None]
  - GENERAL PHYSICAL HEALTH DETERIORATION [None]
  - HAEMATEMESIS [None]
  - HALLUCINATION [None]
  - HERPES SIMPLEX [None]
  - LUNG DISORDER [None]
  - MITRAL VALVE INCOMPETENCE [None]
  - OCULAR HYPERAEMIA [None]
  - PULMONARY VALVE INCOMPETENCE [None]
  - RESPIRATORY DISORDER [None]
  - STAPHYLOCOCCAL INFECTION [None]
  - TRICUSPID VALVE INCOMPETENCE [None]
  - WHITE BLOOD CELL COUNT DECREASED [None]
